FAERS Safety Report 10505806 (Version 1)
Quarter: 2014Q4

REPORT INFORMATION
  Report Type: Spontaneous
  Country: CA (occurrence: CA)
  Receive Date: 20141008
  Receipt Date: 20141008
  Transmission Date: 20150528
  Serious: Yes (Other)
  Sender: FDA-Public Use
  Company Number: PHHY2014CA129867

PATIENT
  Age: 67 Year
  Sex: Female

DRUGS (1)
  1. GLEEVEC [Suspect]
     Active Substance: IMATINIB MESYLATE
     Indication: CHRONIC MYELOID LEUKAEMIA
     Dosage: 400 MG, DAILY
     Route: 048
     Dates: start: 20070209

REACTIONS (8)
  - Dyspnoea [Not Recovered/Not Resolved]
  - Congestive cardiomyopathy [Not Recovered/Not Resolved]
  - Chest discomfort [Unknown]
  - Fatigue [Unknown]
  - Chest pain [Unknown]
  - Diarrhoea [Unknown]
  - Muscle spasms [Unknown]
  - Malaise [Unknown]

NARRATIVE: CASE EVENT DATE: 20140820
